FAERS Safety Report 23380040 (Version 2)
Quarter: 2024Q1

REPORT INFORMATION
  Report Type: Other
  Country: DE (occurrence: None)
  Receive Date: 20240109
  Receipt Date: 20240115
  Transmission Date: 20240410
  Serious: Yes (Life-Threatening, Hospitalization)
  Sender: FDA-Public Use
  Company Number: DE-ROCHE-3486051

PATIENT
  Age: 0 Year
  Sex: Male
  Weight: 11.4 kg

DRUGS (21)
  1. OCRELIZUMAB [Suspect]
     Active Substance: OCRELIZUMAB
     Indication: Product used for unknown indication
     Route: 064
     Dates: start: 20211117, end: 20211117
  2. ACETAMINOPHEN [Concomitant]
     Active Substance: ACETAMINOPHEN
     Dates: start: 20211117, end: 20211117
  3. DIMETHINDENE [Concomitant]
     Active Substance: DIMETHINDENE
     Dates: start: 20211202, end: 20211204
  4. DIMETHINDENE [Concomitant]
     Active Substance: DIMETHINDENE
     Dates: start: 20211206, end: 20211210
  5. CORTISONE ACETATE [Concomitant]
     Active Substance: CORTISONE ACETATE
  6. CLOTRIMAZOLE [Concomitant]
     Active Substance: CLOTRIMAZOLE
     Dates: start: 20220407, end: 20220411
  7. NYSTATIN [Concomitant]
     Active Substance: NYSTATIN
     Dates: start: 20220404, end: 20220406
  8. FOSFOMYCIN TROMETHAMINE [Concomitant]
     Active Substance: FOSFOMYCIN TROMETHAMINE
     Dates: start: 20220413, end: 20220413
  9. AMDINOCILLIN PIVOXIL [Concomitant]
     Active Substance: AMDINOCILLIN PIVOXIL
     Dates: start: 20220414, end: 20220416
  10. MEASLES [Concomitant]
  11. MUMPS VACCINE [Concomitant]
     Active Substance: MUMPS VIRUS STRAIN B LEVEL JERYL LYNN LIVE ANTIGEN
  12. RUBELLA VIRUS STRAIN WISTAR RA 27/3 LIVE ANTIGEN [Concomitant]
     Active Substance: RUBELLA VIRUS STRAIN WISTAR RA 27/3 LIVE ANTIGEN
  13. DIPHTHERIA TOXOID NOS [Concomitant]
     Active Substance: CORYNEBACTERIUM DIPHTHERIAE TOXOID ANTIGEN (FORMALDEHYDE INACTIVATED)
  14. TETANUS TOXOID ADSORBED (VACCINE) [Concomitant]
     Active Substance: CLOSTRIDIUM TETANI TOXOID ANTIGEN (FORMALDEHYDE INACTIVATED)
  15. ACELLULAR PERTUSSIS VACCINE [Concomitant]
  16. HAEMOPHILUS INFLUENZAE TYPE B [Concomitant]
     Active Substance: HAEMOPHILUS INFLUENZAE TYPE B
  17. HEPATITIS B VIRUS VACCINE [Concomitant]
     Active Substance: HEPATITIS B VIRUS VACCINE
  18. PNEUMOCOCCAL VACCINE POLYVALENT NOS [Concomitant]
     Active Substance: PNEUMOCOCCAL VACCINE POLYVALENT
  19. POLIOMYELITIS VACCINE [Concomitant]
     Active Substance: POLIOMYELITIS VACCINE
  20. HUMAN ROTAVIRUS A [Concomitant]
     Active Substance: HUMAN ROTAVIRUS A
  21. VARICELLA-ZOSTER VIRUS STRAIN OKA/MERCK LIVE ANTIGEN [Concomitant]
     Active Substance: VARICELLA-ZOSTER VIRUS STRAIN OKA/MERCK LIVE ANTIGEN
     Dates: start: 20230906

REACTIONS (2)
  - Respiratory failure [Recovered/Resolved]
  - Foetal exposure during pregnancy [Unknown]

NARRATIVE: CASE EVENT DATE: 20220907
